FAERS Safety Report 5168795-X (Version None)
Quarter: 2006Q4

REPORT INFORMATION
  Report Type: 
  Country: None (occurrence: None)
  Receive Date: 20061211
  Receipt Date: 20061104
  Transmission Date: 20070319
  Serious: Yes (Hospitalization)
  Sender: FDA-Public Use
  Company Number: AT-AMGEN-UK200273

PATIENT
  Sex: Female

DRUGS (4)
  1. NEULASTA [Suspect]
     Indication: CHEMOTHERAPY
     Route: 065
  2. FARMORUBICIN [Concomitant]
     Route: 065
  3. TAXOTERE [Concomitant]
     Route: 065
  4. XELODA [Concomitant]
     Route: 065

REACTIONS (3)
  - CATHETER SITE INFECTION [None]
  - FEBRILE NEUTROPENIA [None]
  - NEUTROPENIA [None]
